FAERS Safety Report 9304199 (Version 2)
Quarter: 2013Q4

REPORT INFORMATION
  Report Type: Spontaneous
  Country: US (occurrence: US)
  Receive Date: 20130522
  Receipt Date: 20131219
  Transmission Date: 20140711
  Serious: Yes (Hospitalization, Disabling, Other)
  Sender: FDA-Public Use
  Company Number: US-009507513-1305USA010850

PATIENT
  Sex: Female
  Weight: 77.98 kg

DRUGS (1)
  1. NUVARING [Suspect]
     Indication: CONTRACEPTION
     Dosage: UNK
     Route: 067
     Dates: start: 2006, end: 201204

REACTIONS (16)
  - Compartment syndrome [Unknown]
  - Limb operation [Unknown]
  - Deep vein thrombosis [Not Recovered/Not Resolved]
  - Concussion [Unknown]
  - Vaginal haemorrhage [Unknown]
  - Joint swelling [Unknown]
  - Abasia [Unknown]
  - Muscle disorder [Unknown]
  - Vein disorder [Unknown]
  - Temporomandibular joint syndrome [Unknown]
  - Rheumatoid arthritis [Unknown]
  - Ovarian cyst [Unknown]
  - Hypertension [Unknown]
  - Convulsion [Unknown]
  - Migraine [Not Recovered/Not Resolved]
  - Mental disorder [Unknown]
